FAERS Safety Report 7915579-2 (Version None)
Quarter: 2011Q4

REPORT INFORMATION
  Report Type: 
  Country: None (occurrence: None)
  Receive Date: 20111115
  Receipt Date: 20110809
  Transmission Date: 20120403
  Serious: No
  Sender: FDA-Public Use
  Company Number: US-BRISTOL-MYERS SQUIBB COMPANY-15938715

PATIENT
  Age: 75 Year
  Sex: Male
  Weight: 84 kg

DRUGS (3)
  1. ECHINACEA [Concomitant]
     Indication: PYREXIA
  2. YERVOY [Suspect]
     Indication: METASTATIC MALIGNANT MELANOMA
     Dosage: 2ND TREATMENT ON 4 WKS AFTER 09JUN2010 3RD TREATMENT ON 29JUL2011
     Dates: start: 20100609
  3. VALERIAN [Concomitant]
     Indication: ANXIETY
     Dosage: 1DF=4 CAPSULES

REACTIONS (7)
  - RASH [None]
  - DIARRHOEA [None]
  - VISUAL ACUITY REDUCED [None]
  - ANXIETY [None]
  - PRURITUS [None]
  - HEADACHE [None]
  - BODY HEIGHT DECREASED [None]
